FAERS Safety Report 20200522 (Version 1)
Quarter: 2021Q4

REPORT INFORMATION
  Report Type: Spontaneous
  Country: DK (occurrence: DK)
  Receive Date: 20211217
  Receipt Date: 20211217
  Transmission Date: 20220303
  Serious: Yes (Hospitalization, Other)
  Sender: FDA-Public Use
  Company Number: DK-SAOL THERAPEUTICS-2021SAO00422

PATIENT
  Sex: Male
  Weight: 3.08 kg

DRUGS (1)
  1. HUMAN RHO(D) IMMUNE GLOBULIN [Suspect]
     Active Substance: HUMAN RHO(D) IMMUNE GLOBULIN
     Indication: Prophylaxis against Rh isoimmunisation
     Dosage: MATERNAL DOSE: 300 ?G AT 30 WEEKS GESTATION
     Route: 064

REACTIONS (9)
  - Hypoxia [Recovered/Resolved]
  - Leukoerythroblastosis [Recovered/Resolved]
  - Thrombocytopenia [Recovered/Resolved]
  - Hyperbilirubinaemia [Recovered/Resolved]
  - Congenital hyperinsulinaemic hypoglycaemia [Recovered/Resolved]
  - Anaemia [Recovered/Resolved]
  - Drug ineffective [Recovered/Resolved]
  - Deficiency of bile secretion [Recovered/Resolved]
  - Foetal exposure during pregnancy [Recovered/Resolved]
